APPROVED DRUG PRODUCT: SILDAFLO
Active Ingredient: SILVER SULFADIAZINE
Strength: 1%
Dosage Form/Route: DRESSING;TOPICAL
Application: N019608 | Product #001
Applicant: FRANKLIN PHARMACEUTICALS INC
Approved: Nov 30, 1989 | RLD: No | RS: No | Type: DISCN